FAERS Safety Report 4638265-3 (Version None)
Quarter: 2005Q2

REPORT INFORMATION
  Report Type: 
  Country: None (occurrence: None)
  Receive Date: 20050415
  Receipt Date: 20050324
  Transmission Date: 20051028
  Serious: Yes (Hospitalization, Other)
  Sender: FDA-Public Use
  Company Number: US_980401518

PATIENT
  Age: 70 Year
  Sex: Female
  Weight: 77 kg

DRUGS (18)
  1. HUMULIN L [Suspect]
     Indication: DIABETES MELLITUS INSULIN-DEPENDENT
     Dosage: 10 U/DAY
     Dates: start: 19980101
  2. HUMALOG [Suspect]
     Indication: DIABETES MELLITUS INSULIN-DEPENDENT
     Dosage: 7.5 U DAY
     Dates: start: 19980101
  3. HUMALOG [Suspect]
     Indication: DIABETES MELLITUS INSULIN-DEPENDENT
     Dosage: 1 U/3 DAY
  4. HUMULIN U [Suspect]
     Indication: DIABETES MELLITUS
     Dosage: 34 U DAY
     Dates: start: 19990101
  5. ILETIN [Suspect]
     Indication: DIABETES MELLITUS
  6. SYNTHROID [Concomitant]
  7. LOTREL [Concomitant]
  8. CALCIUM GLUCONATE [Concomitant]
  9. PLAVIX [Concomitant]
  10. VIOXX [Concomitant]
  11. TOPROL-XL [Concomitant]
  12. CENTRUM [Concomitant]
  13. VITAMIN E [Concomitant]
  14. GLUCOSAMINE [Concomitant]
  15. THYROID TAB [Concomitant]
  16. VITAMINS NOS [Concomitant]
  17. FOSAMAX [Concomitant]
  18. CALCIUM GLUCONATE [Concomitant]

REACTIONS (21)
  - CATARACT [None]
  - CATARACT OPERATION [None]
  - CORONARY ARTERY SURGERY [None]
  - COUGH [None]
  - DIABETES MELLITUS INADEQUATE CONTROL [None]
  - DIABETIC EYE DISEASE [None]
  - DISEASE PROGRESSION [None]
  - DRUG HYPERSENSITIVITY [None]
  - DYSPNOEA EXERTIONAL [None]
  - HYPERHIDROSIS [None]
  - HYPOGLYCAEMIA [None]
  - MOVEMENT DISORDER [None]
  - MYALGIA [None]
  - MYOPIA [None]
  - OEDEMA PERIPHERAL [None]
  - OSTEOARTHRITIS [None]
  - OSTEOPOROSIS [None]
  - PALPITATIONS [None]
  - PHARMACEUTICAL PRODUCT COMPLAINT [None]
  - SCLERODERMA [None]
  - WEIGHT INCREASED [None]
